FAERS Safety Report 7587450-X (Version None)
Quarter: 2011Q3

REPORT INFORMATION
  Report Type: 
  Country: None (occurrence: None)
  Receive Date: 20110704
  Receipt Date: 20110622
  Transmission Date: 20111222
  Serious: No
  Sender: FDA-Public Use
  Company Number: US-BIOGENIDEC-2011BI023362

PATIENT
  Sex: Male

DRUGS (1)
  1. AVONEX [Suspect]
     Indication: MULTIPLE SCLEROSIS
     Route: 030
     Dates: start: 20100101

REACTIONS (7)
  - INSOMNIA [None]
  - SLUGGISHNESS [None]
  - MUSCLE SPASMS [None]
  - FATIGUE [None]
  - APATHY [None]
  - MUSCLE TWITCHING [None]
  - SOCIAL AVOIDANT BEHAVIOUR [None]
